FAERS Safety Report 8772813 (Version 1)
Quarter: 2012Q4

REPORT INFORMATION
  Report Type: 
  Country: US (occurrence: US)
  Receive Date: 20120907
  Receipt Date: 20120907
  Transmission Date: 20130627
  Serious: Yes (Death)
  Sender: FDA-Public Use
  Company Number: US-PFIZER INC-2012218740

PATIENT
  Age: 54 Year
  Sex: Female

DRUGS (1)
  1. ELLENCE [Suspect]
     Indication: GASTRIC CANCER
     Dosage: 75 mg, (every 21 days)
     Dates: start: 20120710

REACTIONS (1)
  - Death [Fatal]
